FAERS Safety Report 4949368-8 (Version None)
Quarter: 2006Q1

REPORT INFORMATION
  Report Type: 
  Country: None (occurrence: None)
  Receive Date: 20060321
  Receipt Date: 20060307
  Transmission Date: 20060701
  Serious: Yes (Other)
  Sender: FDA-Public Use
  Company Number: US-AMGEN-US171889

PATIENT
  Age: 67 Year
  Sex: Male

DRUGS (3)
  1. PROCRIT [Suspect]
     Indication: ANAEMIA OF MALIGNANT DISEASE
     Route: 058
     Dates: start: 20051116
  2. CISPLATIN [Concomitant]
     Dates: start: 20050912, end: 20051230
  3. VP-16 [Concomitant]
     Dates: start: 20050912, end: 20051231

REACTIONS (3)
  - APLASIA PURE RED CELL [None]
  - PLATELET COUNT DECREASED [None]
  - THERAPY NON-RESPONDER [None]
